FAERS Safety Report 17236589 (Version 1)
Quarter: 2020Q1

REPORT INFORMATION
  Report Type: Spontaneous
  Country: FR (occurrence: FR)
  Receive Date: 20200106
  Receipt Date: 20200106
  Transmission Date: 20200409
  Serious: Yes (Hospitalization)
  Sender: FDA-Public Use
  Company Number: FR-PFIZER INC-2020000840

PATIENT
  Age: 17 Year
  Sex: Female

DRUGS (2)
  1. PIPERACILLIN/TAZOBACTAM [Suspect]
     Active Substance: PIPERACILLIN SODIUM\TAZOBACTAM SODIUM
     Indication: OSTEITIS
     Dosage: 16 G, 1X/DAY
     Route: 041
     Dates: start: 20191114, end: 20191120
  2. ZYVOXID [Suspect]
     Active Substance: LINEZOLID
     Indication: OSTEITIS
     Dosage: 1200 MG, 1X/DAY
     Route: 048
     Dates: start: 20191114

REACTIONS (2)
  - Hepatocellular injury [Recovered/Resolved]
  - Off label use [Unknown]

NARRATIVE: CASE EVENT DATE: 20191114
